FAERS Safety Report 9725362 (Version 1)
Quarter: 2013Q4

REPORT INFORMATION
  Report Type: Spontaneous
  Country: JP (occurrence: JP)
  Receive Date: 20131203
  Receipt Date: 20131203
  Transmission Date: 20140711
  Serious: Yes (Other)
  Sender: FDA-Public Use
  Company Number: JP-MYLANLABS-2013S1026601

PATIENT
  Age: 68 Year
  Sex: Female
  Weight: 34 kg

DRUGS (14)
  1. FENTANYL [Suspect]
     Dosage: 0.1MG
     Route: 008
  2. FENTANYL [Suspect]
     Dosage: 0.3MG
     Route: 042
  3. FENTANYL [Suspect]
     Dosage: 18 MICROG/HOUR; THEN DECREASED TO 12 MICROG/HOUR
     Route: 008
  4. FENTANYL [Suspect]
     Dosage: 12 MICROG/HOUR
     Route: 008
  5. LIDOCAINE [Concomitant]
     Dosage: 2ML OF 2% LIDOCAINE; THEN 5ML OF 1% LIDOCAINE AFTER SURGERY
     Route: 008
  6. AMINOPHYLLINE [Concomitant]
     Indication: ASTHMA PROPHYLAXIS
     Dosage: 250MG
     Route: 042
  7. SEVOFLURANE [Concomitant]
     Indication: INDUCTION OF ANAESTHESIA
     Dosage: 1-5%
     Route: 065
  8. SEVOFLURANE [Concomitant]
     Indication: MAINTENANCE OF ANAESTHESIA
     Dosage: 1.5%
     Route: 065
  9. REMIFENTANIL [Concomitant]
     Indication: INDUCTION OF ANAESTHESIA
     Dosage: 0.25 MICROG/KG/MIN
     Route: 065
  10. REMIFENTANIL [Concomitant]
     Indication: MAINTENANCE OF ANAESTHESIA
     Dosage: 0.2 MICROG/KG/MIN
     Route: 065
  11. ROCURONIUM BROMIDE [Concomitant]
     Indication: INDUCTION OF ANAESTHESIA
     Dosage: 30MG
     Route: 065
  12. ROPIVACAINE [Concomitant]
     Dosage: 6 ML/HOUR OF 0.2% ROPIVACAINE; THEN DECREASED TO 4 ML/HOUR OF 0.2% ROPIVACAINE
     Route: 008
  13. ROPIVACAINE [Concomitant]
     Dosage: 4 ML/HOUR OF 0.2% ROPIVACAINE
     Route: 008
  14. LIDOCAINE [Concomitant]
     Dosage: 5 ML OF 1% LIDOCAINE
     Route: 008

REACTIONS (3)
  - Respiratory depression [Recovered/Resolved]
  - Accidental exposure to product [Recovered/Resolved]
  - Depressed level of consciousness [Recovered/Resolved]
